FAERS Safety Report 25995120 (Version 1)
Quarter: 2025Q4

REPORT INFORMATION
  Report Type: Spontaneous
  Country: CA (occurrence: None)
  Receive Date: 20251104
  Receipt Date: 20251104
  Transmission Date: 20260117
  Serious: Yes (Death)
  Sender: ORION
  Company Number: CA-AMGEN-CANSP2025212537

PATIENT
  Sex: Female

DRUGS (186)
  1. METHOTREXATE [Suspect]
     Active Substance: METHOTREXATE
     Indication: Product used for unknown indication
  2. METHOTREXATE [Suspect]
     Active Substance: METHOTREXATE
  3. METHOTREXATE [Suspect]
     Active Substance: METHOTREXATE
  4. METHOTREXATE [Suspect]
     Active Substance: METHOTREXATE
  5. METHOTREXATE [Suspect]
     Active Substance: METHOTREXATE
  6. METHOTREXATE [Suspect]
     Active Substance: METHOTREXATE
  7. METHOTREXATE [Suspect]
     Active Substance: METHOTREXATE
  8. METHOTREXATE [Suspect]
     Active Substance: METHOTREXATE
  9. METHOTREXATE [Suspect]
     Active Substance: METHOTREXATE
  10. ENBREL [Suspect]
     Active Substance: ETANERCEPT
     Indication: Product used for unknown indication
  11. ENBREL [Suspect]
     Active Substance: ETANERCEPT
  12. ENBREL [Suspect]
     Active Substance: ETANERCEPT
  13. ENBREL [Suspect]
     Active Substance: ETANERCEPT
  14. ADALIMUMAB [Suspect]
     Active Substance: ADALIMUMAB
     Indication: Product used for unknown indication
  15. ADALIMUMAB [Suspect]
     Active Substance: ADALIMUMAB
  16. ADALIMUMAB [Suspect]
     Active Substance: ADALIMUMAB
  17. INFLIXIMAB [Suspect]
     Active Substance: INFLIXIMAB
     Indication: Product used for unknown indication
  18. INFLIXIMAB [Suspect]
     Active Substance: INFLIXIMAB
  19. HYDROCORTISONE SODIUM SUCCINATE [Suspect]
     Active Substance: HYDROCORTISONE SODIUM SUCCINATE
     Indication: Product used for unknown indication
  20. HYDROCORTISONE SODIUM SUCCINATE [Suspect]
     Active Substance: HYDROCORTISONE SODIUM SUCCINATE
  21. METHYLPREDNISOLONE SODIUM SUCCINATE [Suspect]
     Active Substance: METHYLPREDNISOLONE SODIUM SUCCINATE
     Indication: Product used for unknown indication
  22. SULFASALAZINE [Suspect]
     Active Substance: SULFASALAZINE
     Indication: Product used for unknown indication
  23. SULFASALAZINE [Suspect]
     Active Substance: SULFASALAZINE
  24. SULFASALAZINE [Suspect]
     Active Substance: SULFASALAZINE
  25. SULFASALAZINE [Suspect]
     Active Substance: SULFASALAZINE
  26. SULFASALAZINE [Suspect]
     Active Substance: SULFASALAZINE
  27. SULFASALAZINE [Suspect]
     Active Substance: SULFASALAZINE
  28. SULFASALAZINE [Suspect]
     Active Substance: SULFASALAZINE
  29. TOFACITINIB CITRATE [Suspect]
     Active Substance: TOFACITINIB CITRATE
     Indication: Product used for unknown indication
  30. XELJANZ [Suspect]
     Active Substance: TOFACITINIB CITRATE
     Indication: Product used for unknown indication
  31. XELJANZ [Suspect]
     Active Substance: TOFACITINIB CITRATE
  32. OTEZLA [Suspect]
     Active Substance: APREMILAST
     Indication: Product used for unknown indication
  33. OTEZLA [Suspect]
     Active Substance: APREMILAST
  34. OTEZLA [Suspect]
     Active Substance: APREMILAST
  35. OTEZLA [Suspect]
     Active Substance: APREMILAST
  36. OTEZLA [Suspect]
     Active Substance: APREMILAST
  37. USTEKINUMAB [Suspect]
     Active Substance: USTEKINUMAB
     Indication: Product used for unknown indication
  38. APREMILAST [Suspect]
     Active Substance: APREMILAST
     Indication: Product used for unknown indication
  39. CALCIUM CARBONATE [Suspect]
     Active Substance: CALCIUM CARBONATE
     Indication: Product used for unknown indication
  40. CALCIUM CARBONATE [Suspect]
     Active Substance: CALCIUM CARBONATE
  41. CALCIUM CARBONATE [Suspect]
     Active Substance: CALCIUM CARBONATE
  42. CALCIUM CARBONATE [Suspect]
     Active Substance: CALCIUM CARBONATE
  43. CALCIUM CARBONATE [Suspect]
     Active Substance: CALCIUM CARBONATE
  44. CALCIUM CITRATE [Suspect]
     Active Substance: CALCIUM CITRATE
     Indication: Product used for unknown indication
  45. CALCIUM GLUBIONATE [Suspect]
     Active Substance: CALCIUM GLUBIONATE
     Indication: Product used for unknown indication
  46. DICLOFENAC SODIUM [Suspect]
     Active Substance: DICLOFENAC SODIUM
     Indication: Product used for unknown indication
  47. DICLOFENAC SODIUM [Suspect]
     Active Substance: DICLOFENAC SODIUM
  48. DICLOFENAC SODIUM [Suspect]
     Active Substance: DICLOFENAC SODIUM
  49. DICLOFENAC SODIUM [Suspect]
     Active Substance: DICLOFENAC SODIUM
  50. DICLOFENAC SODIUM [Suspect]
     Active Substance: DICLOFENAC SODIUM
  51. DICLOFENAC SODIUM [Suspect]
     Active Substance: DICLOFENAC SODIUM
  52. DICLOFENAC SODIUM [Suspect]
     Active Substance: DICLOFENAC SODIUM
  53. PREDNISONE [Suspect]
     Active Substance: PREDNISONE
     Indication: Product used for unknown indication
  54. PREDNISONE [Suspect]
     Active Substance: PREDNISONE
  55. PREDNISONE [Suspect]
     Active Substance: PREDNISONE
  56. PREDNISONE [Suspect]
     Active Substance: PREDNISONE
  57. PREDNISONE [Suspect]
     Active Substance: PREDNISONE
  58. PREDNISONE [Suspect]
     Active Substance: PREDNISONE
  59. CETIRIZINE HYDROCHLORIDE [Suspect]
     Active Substance: CETIRIZINE HYDROCHLORIDE
     Indication: Product used for unknown indication
  60. CETIRIZINE HYDROCHLORIDE [Suspect]
     Active Substance: CETIRIZINE HYDROCHLORIDE
  61. CETIRIZINE HYDROCHLORIDE [Suspect]
     Active Substance: CETIRIZINE HYDROCHLORIDE
  62. CETIRIZINE HYDROCHLORIDE [Suspect]
     Active Substance: CETIRIZINE HYDROCHLORIDE
  63. CIMZIA [Suspect]
     Active Substance: CERTOLIZUMAB PEGOL
     Indication: Product used for unknown indication
  64. CIMZIA [Suspect]
     Active Substance: CERTOLIZUMAB PEGOL
  65. CIMZIA [Suspect]
     Active Substance: CERTOLIZUMAB PEGOL
  66. CIMZIA [Suspect]
     Active Substance: CERTOLIZUMAB PEGOL
  67. ACETAMINOPHEN [Suspect]
     Active Substance: ACETAMINOPHEN
     Indication: Product used for unknown indication
  68. ACETAMINOPHEN [Suspect]
     Active Substance: ACETAMINOPHEN
  69. DIPHENHYDRAMINE HYDROCHLORIDE [Suspect]
     Active Substance: DIPHENHYDRAMINE HYDROCHLORIDE
     Indication: Product used for unknown indication
  70. ALENDRONATE SODIUM [Suspect]
     Active Substance: ALENDRONATE SODIUM
     Indication: Product used for unknown indication
  71. ALENDRONIC ACID [Suspect]
     Active Substance: ALENDRONIC ACID
     Indication: Product used for unknown indication
  72. PANTOPRAZOLE SODIUM ANHYDROUS [Suspect]
     Active Substance: PANTOPRAZOLE SODIUM ANHYDROUS
     Indication: Product used for unknown indication
  73. AZATHIOPRINE [Suspect]
     Active Substance: AZATHIOPRINE
     Indication: Product used for unknown indication
  74. BIOFLAVONOIDS [Suspect]
     Active Substance: BIOFLAVONOIDS
     Indication: Product used for unknown indication
  75. CELECOXIB [Suspect]
     Active Substance: CELECOXIB
     Indication: Product used for unknown indication
  76. CELECOXIB [Suspect]
     Active Substance: CELECOXIB
  77. CELECOXIB [Suspect]
     Active Substance: CELECOXIB
  78. CELECOXIB [Suspect]
     Active Substance: CELECOXIB
  79. CELECOXIB [Suspect]
     Active Substance: CELECOXIB
  80. CHLORHEXIDINE GLUCONATE [Suspect]
     Active Substance: CHLORHEXIDINE GLUCONATE
     Indication: Product used for unknown indication
  81. CHLORHEXIDINE GLUCONATE [Suspect]
     Active Substance: CHLORHEXIDINE GLUCONATE
  82. CHLORHEXIDINE GLUCONATE [Suspect]
     Active Substance: CHLORHEXIDINE GLUCONATE
  83. CLONIDINE HYDROCHLORIDE [Suspect]
     Active Substance: CLONIDINE HYDROCHLORIDE
     Indication: Product used for unknown indication
  84. DESOXIMETASONE [Suspect]
     Active Substance: DESOXIMETASONE
     Indication: Product used for unknown indication
  85. DESOXIMETASONE [Suspect]
     Active Substance: DESOXIMETASONE
  86. DESOXIMETASONE [Suspect]
     Active Substance: DESOXIMETASONE
  87. DESOXIMETASONE [Suspect]
     Active Substance: DESOXIMETASONE
  88. DESOXIMETASONE [Suspect]
     Active Substance: DESOXIMETASONE
  89. DESOXIMETASONE [Suspect]
     Active Substance: DESOXIMETASONE
  90. DESOXIMETASONE [Suspect]
     Active Substance: DESOXIMETASONE
  91. DESOXIMETASONE [Suspect]
     Active Substance: DESOXIMETASONE
  92. DICLOFENAC POTASSIUM [Suspect]
     Active Substance: DICLOFENAC POTASSIUM
     Indication: Product used for unknown indication
  93. DICLOFENAC POTASSIUM [Suspect]
     Active Substance: DICLOFENAC POTASSIUM
  94. DILTIAZEM HYDROCHLORIDE [Suspect]
     Active Substance: DILTIAZEM HYDROCHLORIDE
     Indication: Product used for unknown indication
  95. DOXYCYCLINE HYCLATE [Suspect]
     Active Substance: DOXYCYCLINE HYCLATE
     Indication: Product used for unknown indication
  96. SULFISOMIDINE [Suspect]
     Active Substance: SULFISOMIDINE
     Indication: Product used for unknown indication
  97. ENTYVIO [Suspect]
     Active Substance: VEDOLIZUMAB
     Indication: Product used for unknown indication
  98. ERELZI [Suspect]
     Active Substance: ETANERCEPT-SZZS
     Indication: Product used for unknown indication
  99. ERELZI [Suspect]
     Active Substance: ETANERCEPT-SZZS
  100. FOLIC ACID [Suspect]
     Active Substance: FOLIC ACID
     Indication: Product used for unknown indication
  101. FOLIC ACID [Suspect]
     Active Substance: FOLIC ACID
  102. FOLIC ACID [Suspect]
     Active Substance: FOLIC ACID
  103. FOLIC ACID [Suspect]
     Active Substance: FOLIC ACID
  104. FOLIC ACID [Suspect]
     Active Substance: FOLIC ACID
  105. FOLIC ACID [Suspect]
     Active Substance: FOLIC ACID
  106. FOLIC ACID [Suspect]
     Active Substance: FOLIC ACID
  107. FOLIC ACID [Suspect]
     Active Substance: FOLIC ACID
  108. FOLIC ACID [Suspect]
     Active Substance: FOLIC ACID
  109. FOLIC ACID [Suspect]
     Active Substance: FOLIC ACID
  110. GOLIMUMAB [Suspect]
     Active Substance: GOLIMUMAB
     Indication: Product used for unknown indication
  111. FRAMYCETIN SULFATE [Suspect]
     Active Substance: FRAMYCETIN SULFATE
     Indication: Product used for unknown indication
  112. HUMIRA [Suspect]
     Active Substance: ADALIMUMAB
     Indication: Product used for unknown indication
  113. HUMIRA [Suspect]
     Active Substance: ADALIMUMAB
  114. HUMIRA [Suspect]
     Active Substance: ADALIMUMAB
  115. HUMIRA [Suspect]
     Active Substance: ADALIMUMAB
  116. GRAMICIDIN [Suspect]
     Active Substance: GRAMICIDIN
     Indication: Product used for unknown indication
  117. HYDROXYCHLOROQUINE [Suspect]
     Active Substance: HYDROXYCHLOROQUINE
     Indication: Product used for unknown indication
  118. HYDROXYCHLOROQUINE [Suspect]
     Active Substance: HYDROXYCHLOROQUINE
  119. HYDROXYCHLOROQUINE [Suspect]
     Active Substance: HYDROXYCHLOROQUINE
  120. HYDROXYCHLOROQUINE [Suspect]
     Active Substance: HYDROXYCHLOROQUINE
  121. HYDROXYCHLOROQUINE [Suspect]
     Active Substance: HYDROXYCHLOROQUINE
  122. HYDROXYCHLOROQUINE [Suspect]
     Active Substance: HYDROXYCHLOROQUINE
  123. HYDROXYCHLOROQUINE [Suspect]
     Active Substance: HYDROXYCHLOROQUINE
  124. HYDROXYCHLOROQUINE [Suspect]
     Active Substance: HYDROXYCHLOROQUINE
  125. HYDROXYCHLOROQUINE [Suspect]
     Active Substance: HYDROXYCHLOROQUINE
  126. ISOPROPYL ALCOHOL [Suspect]
     Active Substance: ISOPROPYL ALCOHOL
     Indication: Product used for unknown indication
  127. LYRICA [Suspect]
     Active Substance: PREGABALIN
     Indication: Product used for unknown indication
  128. MESALAMINE [Suspect]
     Active Substance: MESALAMINE
     Indication: Product used for unknown indication
  129. MORPHINE SULFATE [Suspect]
     Active Substance: MORPHINE SULFATE
     Indication: Product used for unknown indication
  130. MYCOPHENOLATE MOFETIL [Suspect]
     Active Substance: MYCOPHENOLATE MOFETIL
     Indication: Product used for unknown indication
  131. NAPROXEN SODIUM [Suspect]
     Active Substance: NAPROXEN SODIUM
     Indication: Product used for unknown indication
  132. NAPROXEN SODIUM [Suspect]
     Active Substance: NAPROXEN SODIUM
  133. NITROFURAZONE [Suspect]
     Active Substance: NITROFURAZONE
     Indication: Product used for unknown indication
  134. NITROFURAZONE [Suspect]
     Active Substance: NITROFURAZONE
  135. ORENCIA [Suspect]
     Active Substance: ABATACEPT
     Indication: Product used for unknown indication
  136. ORENCIA [Suspect]
     Active Substance: ABATACEPT
  137. ORENCIA [Suspect]
     Active Substance: ABATACEPT
  138. ORENCIA [Suspect]
     Active Substance: ABATACEPT
  139. ORENCIA [Suspect]
     Active Substance: ABATACEPT
  140. ORENCIA [Suspect]
     Active Substance: ABATACEPT
  141. ORENCIA [Suspect]
     Active Substance: ABATACEPT
  142. ORENCIA [Suspect]
     Active Substance: ABATACEPT
  143. ORENCIA [Suspect]
     Active Substance: ABATACEPT
  144. ORENCIA [Suspect]
     Active Substance: ABATACEPT
  145. ORENCIA [Suspect]
     Active Substance: ABATACEPT
  146. OXYCODONE [Suspect]
     Active Substance: OXYCODONE
     Indication: Product used for unknown indication
  147. OXYCODONE [Suspect]
     Active Substance: OXYCODONE
  148. OXYCODONE TEREPHTHALATE [Suspect]
     Active Substance: OXYCODONE TEREPHTHALATE
     Indication: Product used for unknown indication
  149. PARA-AMINOSALICYLIC ACID [Suspect]
     Active Substance: AMINOSALICYLIC ACID
     Indication: Product used for unknown indication
  150. PHTHALYLSULFATHIAZOLE [Suspect]
     Active Substance: PHTHALYLSULFATHIAZOLE
     Indication: Product used for unknown indication
  151. PHTHALYLSULFATHIAZOLE [Suspect]
     Active Substance: PHTHALYLSULFATHIAZOLE
  152. PHTHALYLSULFATHIAZOLE [Suspect]
     Active Substance: PHTHALYLSULFATHIAZOLE
  153. PHTHALYLSULFATHIAZOLE [Suspect]
     Active Substance: PHTHALYLSULFATHIAZOLE
  154. PHTHALYLSULFATHIAZOLE [Suspect]
     Active Substance: PHTHALYLSULFATHIAZOLE
  155. PHTHALYLSULFATHIAZOLE [Suspect]
     Active Substance: PHTHALYLSULFATHIAZOLE
  156. PSEUDOEPHEDRINE [Suspect]
     Active Substance: PSEUDOEPHEDRINE
     Indication: Product used for unknown indication
  157. QUETIAPINE FUMARATE [Suspect]
     Active Substance: QUETIAPINE FUMARATE
     Indication: Product used for unknown indication
  158. SALICYLIC ACID [Suspect]
     Active Substance: SALICYLIC ACID
     Indication: Product used for unknown indication
  159. THYMOL [Suspect]
     Active Substance: THYMOL
     Indication: Product used for unknown indication
  160. THYMOL [Suspect]
     Active Substance: THYMOL
  161. TOCILIZUMAB [Suspect]
     Active Substance: TOCILIZUMAB
     Indication: Product used for unknown indication
  162. TOCILIZUMAB [Suspect]
     Active Substance: TOCILIZUMAB
  163. TOCILIZUMAB [Suspect]
     Active Substance: TOCILIZUMAB
  164. TOCILIZUMAB [Suspect]
     Active Substance: TOCILIZUMAB
  165. TOCILIZUMAB [Suspect]
     Active Substance: TOCILIZUMAB
  166. TOCILIZUMAB [Suspect]
     Active Substance: TOCILIZUMAB
  167. TOCILIZUMAB [Suspect]
     Active Substance: TOCILIZUMAB
  168. TOCILIZUMAB [Suspect]
     Active Substance: TOCILIZUMAB
  169. TOCILIZUMAB [Suspect]
     Active Substance: TOCILIZUMAB
  170. TOCILIZUMAB [Suspect]
     Active Substance: TOCILIZUMAB
  171. TOCILIZUMAB [Suspect]
     Active Substance: TOCILIZUMAB
  172. TOCILIZUMAB [Suspect]
     Active Substance: TOCILIZUMAB
  173. TRAMADOL HYDROCHLORIDE [Suspect]
     Active Substance: TRAMADOL HYDROCHLORIDE
     Indication: Product used for unknown indication
  174. TRIAMCINOLONE ACETONIDE [Suspect]
     Active Substance: TRIAMCINOLONE ACETONIDE
     Indication: Product used for unknown indication
  175. TRICLOSAN [Suspect]
     Active Substance: TRICLOSAN
     Indication: Product used for unknown indication
  176. TYROTHRICIN [Suspect]
     Active Substance: TYROTHRICIN
     Indication: Product used for unknown indication
  177. TYROTHRICIN [Suspect]
     Active Substance: TYROTHRICIN
  178. SULFAMETHOXAZOLE [Suspect]
     Active Substance: SULFAMETHOXAZOLE
     Indication: Product used for unknown indication
  179. DICLOFENAC DIETHYLAMINE [Suspect]
     Active Substance: DICLOFENAC DIETHYLAMINE
     Indication: Product used for unknown indication
  180. DICLOFENAC DIETHYLAMINE [Suspect]
     Active Substance: DICLOFENAC DIETHYLAMINE
  181. DICLOFENAC DIETHYLAMINE [Suspect]
     Active Substance: DICLOFENAC DIETHYLAMINE
  182. METHOTREXATE [Suspect]
     Active Substance: METHOTREXATE
     Indication: Product used for unknown indication
  183. METHOTREXATE [Suspect]
     Active Substance: METHOTREXATE
  184. METHOTREXATE [Suspect]
     Active Substance: METHOTREXATE
  185. METHOTREXATE [Suspect]
     Active Substance: METHOTREXATE
  186. METHOTREXATE [Suspect]
     Active Substance: METHOTREXATE

REACTIONS (13)
  - Hip arthroplasty [Fatal]
  - Hypercholesterolaemia [Fatal]
  - Hypersensitivity [Fatal]
  - Hypertension [Fatal]
  - Hypoaesthesia [Fatal]
  - Impaired healing [Fatal]
  - Infection [Fatal]
  - Injury [Fatal]
  - Irritable bowel syndrome [Fatal]
  - Joint dislocation [Fatal]
  - Joint range of motion decreased [Fatal]
  - Joint stiffness [Fatal]
  - Knee arthroplasty [Fatal]
